FAERS Safety Report 8824635 (Version 1)
Quarter: 2012Q4

REPORT INFORMATION
  Report Type: 
  Country: US (occurrence: US)
  Receive Date: 20121004
  Receipt Date: 20121004
  Transmission Date: 20130627
  Serious: Yes (Death, Hospitalization)
  Sender: FDA-Public Use
  Company Number: PHEH2012US019205

PATIENT
  Age: 54 Year
  Sex: Male

DRUGS (5)
  1. DIOVAN [Suspect]
     Indication: HYPERTENSION
     Dosage: 320 mg, QD
     Route: 048
  2. ANALGESICS [Suspect]
  3. REGLAN [Concomitant]
  4. TOPAMAX [Concomitant]
  5. WELLBUTRIN [Concomitant]

REACTIONS (5)
  - Death [Fatal]
  - Road traffic accident [Unknown]
  - Rib fracture [Unknown]
  - Upper limb fracture [Unknown]
  - Hand fracture [Unknown]
